FAERS Safety Report 8540721-2 (Version None)
Quarter: 2012Q3

REPORT INFORMATION
  Report Type: 
  Country: None (occurrence: None)
  Receive Date: 20120726
  Receipt Date: 20090530
  Transmission Date: 20120928
  Serious: Yes (Death, Other)
  Sender: FDA-Public Use
  Company Number: CO-PFIZER INC-2012179895

PATIENT
  Age: 73 Year
  Sex: Female

DRUGS (5)
  1. LIPITOR [Suspect]
     Indication: DYSLIPIDAEMIA
     Dosage: 10 MG, 1X/DAY
  2. GLIBENCLAMIDE [Concomitant]
     Dosage: 5 MG, 1X/DAY
  3. OLMESARTAN MEDOXOMIL AND HYDROCHLOROTHIZIDE [Suspect]
     Indication: HYPERTENSION
     Dosage: 20/12.5 MG, 1X/DAY
  4. LOSARTAN [Concomitant]
     Dosage: 50 MG, 1X/DAY
  5. FUROSEMIDE [Concomitant]
     Dosage: 40 MG, 1X/DAY

REACTIONS (5)
  - DYSPNOEA EXERTIONAL [None]
  - CARDIAC FAILURE [None]
  - DYSPNOEA [None]
  - DEATH [None]
  - CARDIOVASCULAR DISORDER [None]
